FAERS Safety Report 9815085 (Version 4)
Quarter: 2014Q3

REPORT INFORMATION
  Report Type: Report from Study
  Country: BR (occurrence: BR)
  Receive Date: 20140114
  Receipt Date: 20140818
  Transmission Date: 20150326
  Serious: Yes (Other)
  Sender: FDA-Public Use
  Company Number: BR-ROCHE-1321742

PATIENT
  Age: 51 Year
  Sex: Female
  Weight: 63.5 kg

DRUGS (3)
  1. TRAMADOL [Concomitant]
     Active Substance: TRAMADOL
     Dosage: EVERY OTHER DAY
     Route: 065
  2. ACTEMRA [Suspect]
     Active Substance: TOCILIZUMAB
     Indication: RHEUMATOID ARTHRITIS
     Dosage: DATE OF MOST RECENT DOSE WAS 01/DEC/2013
     Route: 042
     Dates: start: 20130630
  3. ACTEMRA [Suspect]
     Active Substance: TOCILIZUMAB
     Dosage: LATEST DOSE RECEIVED ON 17/JUL/2014.
     Route: 042

REACTIONS (5)
  - Drug-induced liver injury [Recovering/Resolving]
  - Malaise [Not Recovered/Not Resolved]
  - Hepatic enzyme abnormal [Not Recovered/Not Resolved]
  - Road traffic accident [Unknown]
  - Myalgia [Not Recovered/Not Resolved]

NARRATIVE: CASE EVENT DATE: 201308
